FAERS Safety Report 18398322 (Version 1)
Quarter: 2020Q4

REPORT INFORMATION
  Report Type: Spontaneous
  Country: IN (occurrence: IN)
  Receive Date: 20201019
  Receipt Date: 20201019
  Transmission Date: 20210114
  Serious: Yes (Life-Threatening, Hospitalization, Other)
  Sender: FDA-Public Use
  Company Number: IN-TORRENT-00002624

PATIENT
  Age: 35 Year
  Sex: Male

DRUGS (1)
  1. RISPERIDONE. [Suspect]
     Active Substance: RISPERIDONE
     Indication: ALCOHOLISM
     Dosage: UNKNOWN

REACTIONS (25)
  - Heart rate increased [Recovered/Resolved]
  - Azotaemia [Recovered/Resolved]
  - Aspartate aminotransferase increased [Recovered/Resolved]
  - Limb injury [Recovered/Resolved]
  - Myositis [Recovered/Resolved]
  - Patient uncooperative [Recovered/Resolved]
  - Agitation [Recovered/Resolved]
  - Behaviour disorder [Recovered/Resolved]
  - Condition aggravated [Recovered/Resolved]
  - Thrombocytopenia [Recovered/Resolved]
  - Fall [Recovered/Resolved]
  - Delirium tremens [Recovered/Resolved]
  - Cerebral ventricle dilatation [Recovered/Resolved]
  - Depressed level of consciousness [Recovered/Resolved]
  - Amnesia [Recovered/Resolved]
  - Pyomyositis [Recovered/Resolved]
  - Hypernatraemia [Recovered/Resolved]
  - Staphylococcal infection [Recovered/Resolved]
  - Rhabdomyolysis [Recovered/Resolved]
  - Acute kidney injury [Recovered/Resolved]
  - Speech disorder [Recovered/Resolved]
  - Cellulitis [Recovered/Resolved]
  - Pyrexia [Recovered/Resolved]
  - Dehydration [Recovered/Resolved]
  - Disorientation [Recovered/Resolved]
